FAERS Safety Report 12100609 (Version 1)
Quarter: 2016Q1

REPORT INFORMATION
  Report Type: Spontaneous
  Country: US (occurrence: US)
  Receive Date: 20160222
  Receipt Date: 20160222
  Transmission Date: 20160526
  Serious: Yes (Death)
  Sender: FDA-Public Use
  Company Number: US-BIOGEN-2015BI148722

PATIENT
  Age: 70 Year
  Sex: Female

DRUGS (1)
  1. TECFIDERA [Suspect]
     Active Substance: DIMETHYL FUMARATE
     Indication: MULTIPLE SCLEROSIS
     Route: 065
     Dates: start: 20141216

REACTIONS (5)
  - Type 2 diabetes mellitus [Fatal]
  - Sepsis [Fatal]
  - Acute respiratory failure [Fatal]
  - Multiple sclerosis [Fatal]
  - Hypertension [Recovered/Resolved]

NARRATIVE: CASE EVENT DATE: 20151017
